FAERS Safety Report 6484687-8 (Version None)
Quarter: 2009Q4

REPORT INFORMATION
  Report Type: 
  Country: None (occurrence: None)
  Receive Date: 20091204
  Receipt Date: 20091119
  Transmission Date: 20100525
  Serious: Yes (Other)
  Sender: FDA-Public Use
  Company Number: 8055219

PATIENT
  Age: 10 Year
  Sex: Male
  Weight: 42 kg

DRUGS (5)
  1. KEPPRA [Suspect]
     Indication: CONVULSION
     Dosage: 1500 MG 2/D PO
     Route: 048
     Dates: start: 20090901
  2. TRILEPTAL [Suspect]
     Indication: CONVULSION
     Dosage: 150 MG 2/D PO
     Route: 048
     Dates: start: 20091024, end: 20091106
  3. TRILEPTAL [Suspect]
     Indication: CONVULSION
     Dosage: 300 MG 2/D PO
     Route: 048
     Dates: start: 20091106, end: 20091112
  4. TRILEPTAL [Suspect]
     Indication: CONVULSION
     Dosage: 450 MG 2/D PO
     Route: 048
     Dates: start: 20091112
  5. TEMODAL [Concomitant]

REACTIONS (3)
  - DRUG EFFECT DECREASED [None]
  - REFUSAL OF TREATMENT BY PATIENT [None]
  - VOMITING [None]
